FAERS Safety Report 11216022 (Version 2)
Quarter: 2016Q1

REPORT INFORMATION
  Report Type: Spontaneous
  Country: JP (occurrence: JP)
  Receive Date: 20150624
  Receipt Date: 20160119
  Transmission Date: 20160525
  Serious: Yes (Other)
  Sender: FDA-Public Use
  Company Number: JP-PFIZER INC-2015203116

PATIENT
  Age: 74 Year
  Sex: Male
  Weight: 65 kg

DRUGS (12)
  1. ADRENALINE [Concomitant]
     Active Substance: EPINEPHRINE
     Dosage: 10-50 MICROG REPEATEDLY
  2. HYDROCORTISONE SODIUM SUCCINATE [Suspect]
     Active Substance: HYDROCORTISONE SODIUM SUCCINATE
     Indication: ANAPHYLAXIS TREATMENT
     Dosage: 100 MG, UNK
     Route: 042
  3. PROPOFOL. [Concomitant]
     Active Substance: PROPOFOL
     Indication: ANAESTHESIA
     Dosage: 80 MG, UNK
  4. SUGAMMADEX SODIUM [Interacting]
     Active Substance: SUGAMMADEX SODIUM
     Dosage: 100 MG, UNK
     Route: 042
  5. STRONGER NEO MINOPHAGEN C [Concomitant]
     Dosage: 20 MG, UNK
  6. REMIFENTANIL [Concomitant]
     Active Substance: REMIFENTANIL
     Indication: ANAESTHESIA
     Dosage: 0.5 MICROG/KG/MIN
  7. ROCURONIUM [Concomitant]
     Active Substance: ROCURONIUM BROMIDE
     Indication: ANAESTHESIA
     Dosage: 20 MG, UNK
  8. FENTANYL. [Concomitant]
     Active Substance: FENTANYL
     Indication: ANAESTHESIA
     Dosage: 100 ?G, UNK
  9. CHLORPHENIRAMINE. [Concomitant]
     Active Substance: CHLORPHENIRAMINE
     Dosage: 5 MG, UNK
  10. SEVOFLURANE. [Concomitant]
     Active Substance: SEVOFLURANE
     Indication: ANAESTHESIA
     Dosage: 1.2%
  11. FAMOTIDINE. [Concomitant]
     Active Substance: FAMOTIDINE
     Dosage: 20 MG, UNK
  12. REMIFENTANIL [Concomitant]
     Active Substance: REMIFENTANIL
     Dosage: 0.2 TO 0.4 MICROG/KG/MIN

REACTIONS (2)
  - Drug interaction [Unknown]
  - Anaphylactic reaction [Recovered/Resolved]
